FAERS Safety Report 7773875-6 (Version None)
Quarter: 2011Q3

REPORT INFORMATION
  Report Type: 
  Country: None (occurrence: None)
  Receive Date: 20110923
  Receipt Date: 20110919
  Transmission Date: 20111222
  Serious: Yes (Other)
  Sender: FDA-Public Use
  Company Number: US-PFIZER INC-2011223188

PATIENT
  Sex: Male
  Weight: 81.633 kg

DRUGS (3)
  1. LYRICA [Interacting]
     Dosage: UNK
     Route: 048
     Dates: start: 20110901
  2. LYRICA [Suspect]
     Dosage: UNK
     Route: 048
     Dates: start: 20110902, end: 20110903
  3. OXYCODONE HCL [Interacting]
     Dosage: UNK
     Dates: start: 20110901

REACTIONS (6)
  - HYPERHIDROSIS [None]
  - ASTHENIA [None]
  - DIZZINESS [None]
  - DRUG INTERACTION [None]
  - EUPHORIC MOOD [None]
  - SURGERY [None]
